FAERS Safety Report 5504116-8 (Version None)
Quarter: 2007Q4

REPORT INFORMATION
  Report Type: 
  Country: None (occurrence: None)
  Receive Date: 20071101
  Receipt Date: 20071031
  Transmission Date: 20080405
  Serious: Yes (Hospitalization)
  Sender: FDA-Public Use
  Company Number: DE-JNJFOC-20070902988

PATIENT
  Age: 54 Year
  Sex: Male

DRUGS (2)
  1. RISPERDAL CONSTA [Suspect]
     Route: 030
  2. RISPERDAL CONSTA [Suspect]
     Indication: SCHIZOPHRENIA, DISORGANISED TYPE
     Route: 030

REACTIONS (3)
  - ANXIETY [None]
  - SENSORY DISTURBANCE [None]
  - SOCIAL AVOIDANT BEHAVIOUR [None]
